FAERS Safety Report 15586453 (Version 1)
Quarter: 2018Q4

REPORT INFORMATION
  Report Type: Spontaneous
  Country: US (occurrence: US)
  Receive Date: 20181105
  Receipt Date: 20181105
  Transmission Date: 20190205
  Serious: Yes (Hospitalization)
  Sender: FDA-Public Use
  Company Number: US-JUBILANT CADISTA PHARMACEUTICALS-2018JUB00449

PATIENT
  Age: 20 Year
  Sex: Male
  Weight: 51.8 kg

DRUGS (3)
  1. INSULIN LISPRO [Concomitant]
     Active Substance: INSULIN LISPRO
     Dosage: 4 UNITS BEFORE BREAKFAST, 8 UNITS BEFORE LUNCH, AND 11UNITS BEFORE DINNER
     Route: 065
  2. LEVOFLOXACIN. [Suspect]
     Active Substance: LEVOFLOXACIN
     Indication: EPIDIDYMITIS
     Dosage: 500 MG, 1X/DAY
     Route: 065
  3. INSULIN DETERMIR [Concomitant]
     Dosage: 12 U AT BEDTIME
     Route: 065

REACTIONS (1)
  - Small fibre neuropathy [Recovering/Resolving]
